FAERS Safety Report 8462840-1 (Version None)
Quarter: 2012Q2

REPORT INFORMATION
  Report Type: 
  Country: None (occurrence: None)
  Receive Date: 20120625
  Receipt Date: 20120615
  Transmission Date: 20120825
  Serious: Yes (Hospitalization)
  Sender: FDA-Public Use
  Company Number: DE-ROCHE-1066438

PATIENT
  Sex: Male
  Weight: 58 kg

DRUGS (13)
  1. EFFIENT [Concomitant]
     Dates: start: 20111213
  2. DERMOXIN (CLOBETASOL PROPIONATE) [Concomitant]
     Dates: start: 20111115, end: 20111130
  3. BLINDED ALISPORIVIR [Suspect]
     Dates: start: 20111218
  4. METOPROLOL TARTRATE [Concomitant]
     Dates: start: 20111201, end: 20111216
  5. COPEGUS [Suspect]
     Indication: HEPATITIS C
     Dosage: 1000 U DAILY
     Dates: start: 20111101, end: 20111216
  6. VENLAFAXINE HCL [Concomitant]
     Dates: start: 20111123
  7. RAMIPRIL [Concomitant]
     Dates: start: 20111101
  8. HYDROCHLOROTHIAZIDE [Concomitant]
     Dates: start: 20111101
  9. ASPIRIN [Concomitant]
  10. BLINDED ALISPORIVIR [Suspect]
     Indication: HEPATITIS C
     Dates: start: 20111101, end: 20111216
  11. POTASSIUM CHLORIDE [Concomitant]
     Dates: start: 20111115, end: 20111201
  12. PEGASYS [Suspect]
     Indication: HEPATITIS C
     Dates: start: 20111101
  13. COPEGUS [Suspect]
     Dosage: 1000 U
     Dates: start: 20111218

REACTIONS (5)
  - CORONARY ARTERY DISEASE [None]
  - DEPRESSION [None]
  - CIRCULATORY COLLAPSE [None]
  - HYPOKALAEMIA [None]
  - VASCULITIS [None]
